FAERS Safety Report 14797362 (Version 1)
Quarter: 2018Q2

REPORT INFORMATION
  Report Type: Report from Study
  Country: JP (occurrence: JP)
  Receive Date: 20180424
  Receipt Date: 20180424
  Transmission Date: 20180711
  Serious: Yes (Hospitalization, Other)
  Sender: FDA-Public Use
  Company Number: JP-AMGEN-JPNCT2015066342

PATIENT
  Age: 2 Year
  Sex: Female
  Weight: 11 kg

DRUGS (12)
  1. IMUNACE [Suspect]
     Active Substance: TECELEUKIN
     Dosage: 520 KIU, UNK
     Route: 041
     Dates: start: 201506, end: 20150612
  2. FILGRASTIM [Suspect]
     Active Substance: FILGRASTIM
     Indication: NEUROBLASTOMA
     Dosage: UNK
     Route: 058
     Dates: start: 20150313
  3. IMUNACE [Suspect]
     Active Substance: TECELEUKIN
     Dosage: 390 UNK, UNK
     Route: 041
     Dates: start: 20150601, end: 201506
  4. MIDAZOLAM [Concomitant]
     Active Substance: MIDAZOLAM HYDROCHLORIDE
     Indication: INVESTIGATION
     Dosage: 1 ML, PRN
     Route: 048
     Dates: start: 20150616
  5. BAKTAR [Concomitant]
     Active Substance: SULFAMETHOXAZOLE\TRIMETHOPRIM
     Indication: PROPHYLAXIS
     Dosage: 1 G, 1X/2WEEKS
     Route: 048
     Dates: start: 20140430
  6. TRICLORYL [Concomitant]
     Active Substance: TRICLOFOS SODIUM
     Indication: INVESTIGATION
     Dosage: 10 ML, PRN
     Route: 048
     Dates: start: 20150616
  7. HOKUNALIN                          /00654901/ [Concomitant]
     Active Substance: TULOBUTEROL
     Indication: PROPHYLAXIS
     Dosage: 0.5 MG, QD
     Route: 062
     Dates: start: 20150423
  8. PRANLUKAST [Concomitant]
     Active Substance: PRANLUKAST
     Indication: PROPHYLAXIS
     Dosage: 35 MG, BID
     Route: 048
     Dates: start: 20150423
  9. CARBOCISTEINE [Concomitant]
     Active Substance: CARBOCYSTEINE
     Indication: PROPHYLAXIS
     Dosage: 3 ML, BID
     Route: 048
     Dates: start: 20150423
  10. FILGRASTIM [Suspect]
     Active Substance: FILGRASTIM
     Dosage: 50 MCG, UNK
     Route: 058
     Dates: start: 20150508
  11. IMUNACE [Suspect]
     Active Substance: TECELEUKIN
     Indication: NEUROBLASTOMA
     Dosage: UNK
     Route: 041
  12. INTAL [Concomitant]
     Active Substance: CROMOLYN SODIUM
     Indication: PROPHYLAXIS
     Dosage: 2 ML, TID
     Route: 055
     Dates: start: 20150423

REACTIONS (32)
  - White blood cell count decreased [Recovered/Resolved]
  - Platelet count decreased [Recovered/Resolved]
  - Dyspnoea [Recovered/Resolved]
  - Device related infection [Recovered/Resolved]
  - Neutrophil count decreased [Recovered/Resolved]
  - Platelet count decreased [Recovered/Resolved]
  - Anaemia [Recovered/Resolved]
  - Hypoxia [Recovered/Resolved]
  - Weight increased [Recovered/Resolved]
  - Gamma-glutamyltransferase increased [Recovered/Resolved]
  - Hypoxia [Recovered/Resolved]
  - Alanine aminotransferase increased [Recovered/Resolved]
  - Weight increased [Recovered/Resolved]
  - Platelet count decreased [Recovered/Resolved]
  - Hypoalbuminaemia [Recovered/Resolved]
  - White blood cell count decreased [Recovered/Resolved]
  - White blood cell count decreased [Recovered/Resolved]
  - Pyrexia [Recovered/Resolved]
  - Anaemia [Recovered/Resolved]
  - Weight increased [Recovered/Resolved]
  - Hypertension [Recovered/Resolved]
  - Anaemia [Recovered/Resolved]
  - Anaemia [Recovered/Resolved]
  - Aspartate aminotransferase increased [Recovered/Resolved]
  - Face oedema [Recovered/Resolved]
  - Weight increased [Recovered/Resolved]
  - Neutrophil count decreased [Recovered/Resolved]
  - Oedema peripheral [Recovered/Resolved]
  - Anaemia [Recovered/Resolved]
  - Hypomagnesaemia [Recovered/Resolved]
  - Cough [Recovered/Resolved]
  - Pain [Recovered/Resolved]

NARRATIVE: CASE EVENT DATE: 20150316
